FAERS Safety Report 21673518 (Version 1)
Quarter: 2022Q4

REPORT INFORMATION
  Report Type: Spontaneous
  Country: KW (occurrence: KW)
  Receive Date: 20221202
  Receipt Date: 20221202
  Transmission Date: 20230113
  Serious: Yes (Other)
  Sender: FDA-Public Use
  Company Number: KW-MYLANLABS-2022M1134471

PATIENT
  Age: 9 Year
  Sex: Male

DRUGS (6)
  1. SERTRALINE [Suspect]
     Active Substance: SERTRALINE HYDROCHLORIDE
     Indication: Autism spectrum disorder
     Dosage: UNK
     Route: 065
  2. CLONIDINE [Suspect]
     Active Substance: CLONIDINE
     Indication: Autism spectrum disorder
     Dosage: UNK
     Route: 065
  3. ATOMOXETINE [Suspect]
     Active Substance: ATOMOXETINE
     Indication: Autism spectrum disorder
     Dosage: UNK
     Route: 065
  4. VALPROATE SODIUM [Suspect]
     Active Substance: VALPROATE SODIUM
     Indication: Autism spectrum disorder
     Dosage: UNK
     Route: 065
  5. RISPERIDONE [Concomitant]
     Active Substance: RISPERIDONE
     Indication: Autism spectrum disorder
     Dosage: UNK
     Route: 065
  6. ARIPIPRAZOLE [Concomitant]
     Active Substance: ARIPIPRAZOLE
     Indication: Autism spectrum disorder
     Dosage: UNK
     Route: 065

REACTIONS (3)
  - Drug ineffective for unapproved indication [Unknown]
  - Off label use [Unknown]
  - Abdominal discomfort [Unknown]
